FAERS Safety Report 11367862 (Version 2)
Quarter: 2015Q3

REPORT INFORMATION
  Report Type: Spontaneous
  Country: US (occurrence: None)
  Receive Date: 20150810
  Receipt Date: 20150831
  Transmission Date: 20151125
  Serious: No
  Sender: FDA-Public Use
  Company Number: 2015SMT00156

PATIENT
  Age: 68 Year
  Sex: Male
  Weight: 106.6 kg

DRUGS (7)
  1. REGRANEX [Suspect]
     Active Substance: BECAPLERMIN
     Indication: WOUND
     Route: 061
     Dates: start: 20150626, end: 20150724
  2. LYRICA [Concomitant]
     Active Substance: PREGABALIN
  3. COUMADIN (WARFARI SODIUM) [Concomitant]
  4. NEXIUM [Concomitant]
     Active Substance: ESOMEPRAZOLE MAGNESIUM
  5. MIRAPEX [Concomitant]
     Active Substance: PRAMIPEXOLE DIHYDROCHLORIDE
  6. LISINOPRIL. [Concomitant]
     Active Substance: LISINOPRIL
  7. SIMVASTATIN. [Concomitant]
     Active Substance: SIMVASTATIN

REACTIONS (3)
  - Wound complication [None]
  - Off label use [None]
  - Application site pain [None]

NARRATIVE: CASE EVENT DATE: 2015
